FAERS Safety Report 14746689 (Version 1)
Quarter: 2018Q2

REPORT INFORMATION
  Report Type: Spontaneous
  Country: JP (occurrence: JP)
  Receive Date: 20180411
  Receipt Date: 20180411
  Transmission Date: 20180711
  Serious: Yes (Life-Threatening, Hospitalization)
  Sender: FDA-Public Use
  Company Number: JP-ASTRAZENECA-2018SE45458

PATIENT
  Age: 87 Year
  Sex: Female
  Weight: 53 kg

DRUGS (8)
  1. OLMETEC OD [Concomitant]
     Active Substance: OLMESARTAN MEDOXOMIL
     Dosage: AFTER BREAKFAST
     Route: 048
     Dates: end: 20180210
  2. BENET [Concomitant]
     Active Substance: RISEDRONATE SODIUM
     Dosage: AT THE TIME OF AWAKENING
     Route: 048
     Dates: end: 20180210
  3. NORVASC [Concomitant]
     Active Substance: AMLODIPINE BESYLATE
     Dosage: AFTER DINNER
     Route: 048
     Dates: end: 20180210
  4. TAKECAB [Concomitant]
     Active Substance: VONOPRAZAN FUMURATE
     Dosage: AFTER DINNER
     Route: 048
     Dates: end: 20180210
  5. TSUMURA RIKKUNSHITO EXTRACT GRANULES FOR ETHICAL USE [Concomitant]
     Active Substance: HERBALS
     Dosage: BEFORE BREAKFAST AND DINNER
     Route: 048
     Dates: end: 20180210
  6. FLOMOX [Interacting]
     Active Substance: CEFCAPENE PIVOXIL HYDROCHLORIDE HYDRATE
     Indication: CHONDROCALCINOSIS PYROPHOSPHATE
     Dosage: 300.0MG UNKNOWN
     Route: 048
     Dates: start: 20180203, end: 20180208
  7. CRESTOR [Suspect]
     Active Substance: ROSUVASTATIN CALCIUM
     Indication: DYSLIPIDAEMIA
     Dosage: 2.5 MG AFTER DINNER DAILY
     Route: 048
     Dates: end: 20180210
  8. PREDONINE [Interacting]
     Active Substance: PREDNISOLONE
     Indication: CHONDROCALCINOSIS PYROPHOSPHATE
     Dosage: 20.0MG UNKNOWN
     Route: 048
     Dates: start: 20180203, end: 20180208

REACTIONS (5)
  - Drug interaction [Unknown]
  - Hypokalaemia [Unknown]
  - Rhabdomyolysis [Recovering/Resolving]
  - Pleural effusion [Recovering/Resolving]
  - Cardiac failure congestive [Recovering/Resolving]

NARRATIVE: CASE EVENT DATE: 201802
